FAERS Safety Report 7986931-4 (Version None)
Quarter: 2011Q4

REPORT INFORMATION
  Report Type: 
  Country: None (occurrence: None)
  Receive Date: 20111216
  Receipt Date: 20110909
  Transmission Date: 20120403
  Serious: No
  Sender: FDA-Public Use
  Company Number: US-BRISTOL-MYERS SQUIBB COMPANY-16047714

PATIENT
  Age: 74 Year
  Sex: Male

DRUGS (1)
  1. ABILIFY [Suspect]
     Dates: start: 20110101, end: 20110301

REACTIONS (1)
  - GAIT DISTURBANCE [None]
